FAERS Safety Report 20126975 (Version 1)
Quarter: 2021Q4

REPORT INFORMATION
  Report Type: Report from Study
  Country: IE (occurrence: IE)
  Receive Date: 20211129
  Receipt Date: 20211129
  Transmission Date: 20220303
  Serious: Yes (Hospitalization)
  Sender: FDA-Public Use
  Company Number: IE-TAKEDA-2021TUS048626

PATIENT
  Sex: Female

DRUGS (2)
  1. ICATIBANT [Suspect]
     Active Substance: ICATIBANT ACETATE
     Indication: Acquired C1 inhibitor deficiency
     Dosage: 30 MILLIGRAM, PRN
     Route: 058
     Dates: start: 20210325
  2. ICATIBANT [Suspect]
     Active Substance: ICATIBANT ACETATE
     Indication: Acquired C1 inhibitor deficiency
     Dosage: 30 MILLIGRAM, PRN
     Route: 058
     Dates: start: 20210325

REACTIONS (1)
  - Herpes zoster [Not Recovered/Not Resolved]
